FAERS Safety Report 8072337-9 (Version None)
Quarter: 2012Q1

REPORT INFORMATION
  Report Type: 
  Country: None (occurrence: None)
  Receive Date: 20120126
  Receipt Date: 20120118
  Transmission Date: 20120608
  Serious: Yes (Hospitalization, Other)
  Sender: FDA-Public Use
  Company Number: US-BAYER-2011-036419

PATIENT
  Age: 30 Year
  Sex: Female
  Weight: 82 kg

DRUGS (5)
  1. ACETAMINOPHEN [Concomitant]
     Dosage: 650 MG, Q4HR
     Route: 048
  2. YAZ [Suspect]
     Indication: ACNE
     Dosage: UNK
     Dates: start: 20060701, end: 20090701
  3. PROTONIX [Concomitant]
     Indication: GASTRIC ULCER
     Dosage: 40 MG, QD
     Route: 048
     Dates: start: 20080325
  4. IBUPROFEN (ADVIL) [Concomitant]
     Dosage: 400 MG, QID
     Route: 048
  5. YAZ [Suspect]
     Indication: PREMENSTRUAL SYNDROME

REACTIONS (6)
  - BILIARY DYSKINESIA [None]
  - PAIN [None]
  - ANHEDONIA [None]
  - INJURY [None]
  - ANXIETY [None]
  - CHOLECYSTITIS CHRONIC [None]
